FAERS Safety Report 25386892 (Version 3)
Quarter: 2025Q3

REPORT INFORMATION
  Report Type: Spontaneous
  Country: US (occurrence: US)
  Receive Date: 20250602
  Receipt Date: 20250707
  Transmission Date: 20251020
  Serious: No
  Sender: PFIZER
  Company Number: US-PFIZER INC-202500111161

PATIENT
  Age: 81 Year
  Sex: Female

DRUGS (25)
  1. IBRANCE [Suspect]
     Active Substance: PALBOCICLIB
     Indication: Hormone receptor positive HER2 negative breast cancer
     Route: 048
     Dates: start: 20250519
  2. IBRANCE [Suspect]
     Active Substance: PALBOCICLIB
     Indication: Metastases to bone
  3. ENTYVIO [Concomitant]
     Active Substance: VEDOLIZUMAB
  4. ZYRTEC [Concomitant]
     Active Substance: CETIRIZINE HYDROCHLORIDE
  5. LETROZOLE [Concomitant]
     Active Substance: LETROZOLE
  6. TYLENOL [Concomitant]
     Active Substance: ACETAMINOPHEN
  7. OMEPRAZOLE [Concomitant]
     Active Substance: OMEPRAZOLE
  8. ONDANSETRON [Concomitant]
     Active Substance: ONDANSETRON
  9. AMLODIPINE [Concomitant]
     Active Substance: AMLODIPINE BESYLATE
  10. TINACTIN [Concomitant]
     Active Substance: TOLNAFTATE
  11. MIRALAX [Concomitant]
     Active Substance: POLYETHYLENE GLYCOL 3350
  12. PROBIOTICS NOS [Concomitant]
     Active Substance: PROBIOTICS NOS
  13. OXYCODONE [Concomitant]
     Active Substance: OXYCODONE
  14. ONE A DAY WOMEN^S 50+ COMPLETE MULTIVITAMIN [Concomitant]
  15. HYDROCHLOROTHIAZIDE [Concomitant]
     Active Substance: HYDROCHLOROTHIAZIDE
  16. MENTHOL\ZINC OXIDE [Concomitant]
     Active Substance: MENTHOL\ZINC OXIDE
  17. VANICREAM [Concomitant]
     Active Substance: TITANIUM DIOXIDE\ZINC OXIDE
  18. BETAMETHASONE [Concomitant]
     Active Substance: BETAMETHASONE
  19. POTASSIUM [Concomitant]
     Active Substance: POTASSIUM
  20. BUTRANS [Concomitant]
     Active Substance: BUPRENORPHINE
  21. COLACE [Concomitant]
     Active Substance: DOCUSATE SODIUM
  22. PROCHLORPERAZINE [Concomitant]
     Active Substance: PROCHLORPERAZINE
  23. MAXIMUM STRENGTH BLUE EMU PAIN RELIEF BLU EMU [Concomitant]
     Active Substance: TROLAMINE SALICYLATE
  24. FASLODEX [Concomitant]
     Active Substance: FULVESTRANT
  25. XGEVA [Concomitant]
     Active Substance: DENOSUMAB

REACTIONS (7)
  - Oedema peripheral [Not Recovered/Not Resolved]
  - Photophobia [Not Recovered/Not Resolved]
  - Blood calcium decreased [Not Recovered/Not Resolved]
  - Fatigue [Not Recovered/Not Resolved]
  - Nausea [Not Recovered/Not Resolved]
  - Dry mouth [Recovering/Resolving]
  - Peripheral swelling [Recovering/Resolving]
